FAERS Safety Report 10741644 (Version 2)
Quarter: 2015Q1

REPORT INFORMATION
  Report Type: Spontaneous
  Country: US (occurrence: US)
  Receive Date: 20150127
  Receipt Date: 20150216
  Transmission Date: 20150721
  Serious: Yes (Other)
  Sender: FDA-Public Use
  Company Number: US-ABBVIE-15P-163-1337546-00

PATIENT
  Age: 6 Year
  Weight: 27.1 kg

DRUGS (1)
  1. LUPRON DEPOT-PED [Suspect]
     Active Substance: LEUPROLIDE ACETATE
     Indication: PRECOCIOUS PUBERTY
     Route: 030
     Dates: start: 201407, end: 201501

REACTIONS (4)
  - Abscess sterile [Recovered/Resolved]
  - Abscess sterile [Recovered/Resolved]
  - Myalgia [Unknown]
  - Malabsorption [Unknown]

NARRATIVE: CASE EVENT DATE: 201407
